FAERS Safety Report 5919166-7 (Version None)
Quarter: 2008Q4

REPORT INFORMATION
  Report Type: 
  Country: None (occurrence: None)
  Receive Date: 20081015
  Receipt Date: 20081007
  Transmission Date: 20090506
  Serious: Yes (Hospitalization)
  Sender: FDA-Public Use
  Company Number: JP-MERCK-0810USA01908

PATIENT
  Age: 64 Year
  Sex: Male

DRUGS (2)
  1. PEPCID [Suspect]
     Indication: PROPHYLAXIS
     Route: 048
     Dates: start: 20070201, end: 20070401
  2. WARFARIN [Concomitant]
     Indication: ATRIAL FIBRILLATION
     Route: 065
     Dates: start: 20070201

REACTIONS (1)
  - LIVER DISORDER [None]
